FAERS Safety Report 7636225-1 (Version None)
Quarter: 2011Q3

REPORT INFORMATION
  Report Type: 
  Country: None (occurrence: None)
  Receive Date: 20110722
  Receipt Date: 20110722
  Transmission Date: 20111222
  Serious: Yes (Other)
  Sender: FDA-Public Use
  Company Number: None

PATIENT
  Sex: Female
  Weight: 50.8029 kg

DRUGS (1)
  1. TARCEVA [Suspect]
     Indication: LUNG NEOPLASM MALIGNANT
     Dosage: 100 MG DAILY PO
     Route: 048
     Dates: start: 20110420, end: 20110714

REACTIONS (2)
  - HYPOAESTHESIA [None]
  - NO THERAPEUTIC RESPONSE [None]
